FAERS Safety Report 5725554-4 (Version None)
Quarter: 2008Q2

REPORT INFORMATION
  Report Type: 
  Country: None (occurrence: None)
  Receive Date: 20080501
  Receipt Date: 20080428
  Transmission Date: 20081010
  Serious: Yes (Life-Threatening, Hospitalization)
  Sender: FDA-Public Use
  Company Number: PHEH2008US04123

PATIENT
  Age: 42 Year
  Sex: Female
  Weight: 56.689 kg

DRUGS (14)
  1. ATENOLOL [Concomitant]
  2. AMLODIPINE [Concomitant]
  3. LISINOPRIL [Concomitant]
  4. LOSARTAN POTASSIUM [Concomitant]
  5. LANTHANUM CARBONATE [Concomitant]
  6. ALLOPURINOL [Concomitant]
  7. NEPHRO-VITE [Concomitant]
  8. FOLIC ACID [Concomitant]
  9. DIALYSATE [Concomitant]
     Dosage: 2.5MEQ/L
  10. DIALYSATE [Concomitant]
     Dosage: 3.5 MEQ/L
  11. PARICALCITOL [Concomitant]
  12. DARBEPOETIN ALFA [Concomitant]
  13. EXJADE [Suspect]
     Indication: IRON OVERLOAD
     Dosage: 1500 MG, QD
     Route: 048
     Dates: start: 20060304, end: 20070104
  14. EXJADE [Suspect]
     Dosage: 1500 MG, QD
     Route: 048
     Dates: start: 20070506, end: 20070707

REACTIONS (1)
  - HYPOCALCAEMIA [None]
